FAERS Safety Report 4503049-3 (Version None)
Quarter: 2004Q4

REPORT INFORMATION
  Report Type: 
  Country: None (occurrence: None)
  Receive Date: 20041116
  Receipt Date: 20041116
  Transmission Date: 20050328
  Serious: Yes (Other)
  Sender: FDA-Public Use
  Company Number: None

PATIENT
  Sex: Male
  Weight: 77.1115 kg

DRUGS (3)
  1. ZOLOFT [Suspect]
     Indication: ANXIETY
     Dosage: 100MG AT NIGHT OTHER
     Route: 050
     Dates: start: 19970122, end: 20041115
  2. ZOLOFT [Suspect]
     Indication: DEPRESSION
     Dosage: 100MG AT NIGHT OTHER
     Route: 050
     Dates: start: 19970122, end: 20041115
  3. ZOLOFT [Suspect]
     Indication: PANIC ATTACK
     Dosage: 100MG AT NIGHT OTHER
     Route: 050
     Dates: start: 19970122, end: 20041115

REACTIONS (7)
  - ANXIETY [None]
  - ARTHRALGIA [None]
  - LETHARGY [None]
  - LIBIDO DECREASED [None]
  - MYALGIA [None]
  - NOCTURIA [None]
  - POLLAKIURIA [None]
